FAERS Safety Report 6464108-1 (Version None)
Quarter: 2009Q4

REPORT INFORMATION
  Report Type: 
  Country: None (occurrence: None)
  Receive Date: 20091201
  Receipt Date: 20091120
  Transmission Date: 20100525
  Serious: No
  Sender: FDA-Public Use
  Company Number: US-ROXANE LABORATORIES, INC.-2009-RO-01197RO

PATIENT
  Age: 57 Year
  Sex: Female

DRUGS (1)
  1. HYDROMORPHONE HCL [Suspect]
     Indication: INTERVERTEBRAL DISC DISORDER
     Dates: start: 20070101

REACTIONS (2)
  - AGITATION [None]
  - NERVOUSNESS [None]
